FAERS Safety Report 7309358-7 (Version None)
Quarter: 2011Q1

REPORT INFORMATION
  Report Type: 
  Country: None (occurrence: None)
  Receive Date: 20110223
  Receipt Date: 20110211
  Transmission Date: 20110831
  Serious: Yes (Other)
  Sender: FDA-Public Use
  Company Number: US-BAYER-2011-014006

PATIENT
  Sex: Female
  Weight: 41 kg

DRUGS (2)
  1. LEVOXYL [Concomitant]
  2. ASPIRIN [Suspect]
     Indication: PAIN
     Dosage: DAILY DOSE 2 DF
     Route: 048
     Dates: start: 20110101, end: 20110210

REACTIONS (1)
  - DEAFNESS [None]
